FAERS Safety Report 6586602-5 (Version None)
Quarter: 2010Q1

REPORT INFORMATION
  Report Type: 
  Country: None (occurrence: None)
  Receive Date: 20100217
  Receipt Date: 20090513
  Transmission Date: 20100710
  Serious: Yes (Other)
  Sender: FDA-Public Use
  Company Number: US-ALLERGAN-0904277US

PATIENT
  Age: 47 Year
  Sex: Female
  Weight: 92.517 kg

DRUGS (5)
  1. BOTOX [Suspect]
     Indication: MIGRAINE
     Dosage: 100 UNITS, SINGLE
     Route: 030
     Dates: start: 20090320, end: 20090320
  2. SYNTHROID [Concomitant]
     Dosage: 0.1 UG, QD
  3. PROVIGIL [Concomitant]
     Dosage: 100 MG, QD
  4. DARVOCET [Concomitant]
     Dosage: 100 MG, PRN
  5. XANAX [Concomitant]
     Dosage: 0.5 MG, Q12H, PRN

REACTIONS (10)
  - AMNESIA [None]
  - DIZZINESS [None]
  - LOCAL SWELLING [None]
  - MIGRAINE [None]
  - MUSCULAR WEAKNESS [None]
  - NAUSEA [None]
  - NECK PAIN [None]
  - SWELLING FACE [None]
  - VISION BLURRED [None]
  - VOMITING [None]
